FAERS Safety Report 8620990-0 (Version None)
Quarter: 2012Q3

REPORT INFORMATION
  Report Type: 
  Country: None (occurrence: None)
  Receive Date: 20120824
  Receipt Date: 20120814
  Transmission Date: 20120928
  Serious: Yes (Hospitalization, Other)
  Sender: FDA-Public Use
  Company Number: ES-ELI_LILLY_AND_COMPANY-ES201201001143

PATIENT
  Sex: Female
  Weight: 45 kg

DRUGS (4)
  1. CALCIUM CARBONATE [Concomitant]
     Indication: OSTEOPOROSIS
     Dosage: UNK
     Route: 048
  2. REMICADE [Concomitant]
     Route: 048
  3. METHOTREXATE SODIUM [Concomitant]
     Route: 048
  4. FORTEO [Suspect]
     Indication: OSTEOPOROSIS
     Dosage: 20 UG, QD
     Route: 058
     Dates: start: 20100924

REACTIONS (4)
  - RHEUMATOID ARTHRITIS [None]
  - WEIGHT DECREASED [None]
  - LYMPHOMA [None]
  - ANAEMIA [None]
